FAERS Safety Report 9247312 (Version 1)
Quarter: 2013Q2

REPORT INFORMATION
  Report Type: Spontaneous
  Country: US (occurrence: US)
  Receive Date: 20130423
  Receipt Date: 20130423
  Transmission Date: 20140414
  Serious: No
  Sender: FDA-Public Use
  Company Number: US-009507513-1304USA011831

PATIENT
  Age: 77 Year
  Sex: Male

DRUGS (4)
  1. COSOPT PF [Suspect]
     Dosage: 1 DROP INTO EACH EYE, QAM
     Dates: start: 20130413
  2. LATANOPROST [Concomitant]
  3. ATENOLOL [Concomitant]
  4. DILTIAZEM HYDROCHLORIDE [Concomitant]

REACTIONS (1)
  - Erythema [Unknown]
